FAERS Safety Report 4911062-7 (Version None)
Quarter: 2006Q1

REPORT INFORMATION
  Report Type: 
  Country: None (occurrence: None)
  Receive Date: 20060209
  Receipt Date: 20060119
  Transmission Date: 20060701
  Serious: Yes (Hospitalization, Other)
  Sender: FDA-Public Use
  Company Number: GB200601003286

PATIENT
  Age: 68 Year
  Sex: Male

DRUGS (4)
  1. HUMULIN N [Suspect]
     Indication: DIABETES MELLITUS
  2. HUMULIN R [Suspect]
     Dosage: 14 U
  3. HP ERGO, TEAL/CLEAR (HUMAPEN ERGO, TEAL/CLEAR) PEN, REUSABLE [Concomitant]
  4. ACTRAPID HUMAN (INSULIN HUMAN) [Concomitant]

REACTIONS (2)
  - GASTROINTESTINAL CARCINOMA [None]
  - PHARMACEUTICAL PRODUCT COMPLAINT [None]
